FAERS Safety Report 8768544 (Version 1)
Quarter: 2012Q4

REPORT INFORMATION
  Report Type: 
  Country: AR (occurrence: AR)
  Receive Date: 20120906
  Receipt Date: 20120906
  Transmission Date: 20130627
  Serious: Yes (Other)
  Sender: FDA-Public Use
  Company Number: AR-TEVA-356207ISR

PATIENT
  Age: 58 Year
  Sex: Male

DRUGS (7)
  1. PRAMIPEXOLE [Suspect]
     Indication: PARKINSON^S DISEASE
     Dosage: 3 Milligram Daily;
     Route: 065
     Dates: end: 200610
  2. PRAMIPEXOLE [Suspect]
     Indication: PARKINSON^S DISEASE
     Dosage: 4.5 Milligram Daily;
     Route: 065
     Dates: start: 200610
  3. PRAMIPEXOLE [Suspect]
     Indication: PARKINSON^S DISEASE
     Dosage: 8 Milligram Daily;
     Route: 065
  4. AMANTADINE [Suspect]
     Indication: PARKINSON^S DISEASE
     Dosage: 300 Milligram Daily;
     Route: 065
     Dates: start: 2008
  5. LEVODOPA, CARBIDOPA [Suspect]
     Indication: PARKINSON^S DISEASE
     Dosage: 1000/200 mg/d
     Route: 065
     Dates: end: 200610
  6. LEVODOPA\ BENSERAZIDE [Suspect]
     Indication: PARKINSON^S DISEASE
     Dosage: 50/12.5mg 3x daily
     Route: 065
     Dates: end: 200610
  7. LEVODOPA, CARBIDOPA, ENTACAPONE [Suspect]
     Indication: PARKINSON^S DISEASE
     Route: 065
     Dates: start: 200610

REACTIONS (3)
  - Hallucination, visual [Recovered/Resolved]
  - Dopamine dysregulation syndrome [Recovering/Resolving]
  - Insomnia [Unknown]
